FAERS Safety Report 11723126 (Version 1)
Quarter: 2015Q4

REPORT INFORMATION
  Report Type: Spontaneous
  Country: BR (occurrence: BR)
  Receive Date: 20151111
  Receipt Date: 20151111
  Transmission Date: 20160304
  Serious: Yes (Hospitalization)
  Sender: FDA-Public Use
  Company Number: BR-PFIZER INC-2015367945

PATIENT
  Age: 45 Year
  Sex: Male
  Weight: 78 kg

DRUGS (1)
  1. SUTENT [Suspect]
     Active Substance: SUNITINIB MALATE
     Indication: METASTATIC RENAL CELL CARCINOMA
     Dosage: 50 MG, CYCLE 4 PER 2
     Route: 048
     Dates: start: 20141121, end: 201510

REACTIONS (8)
  - Yellow skin [Not Recovered/Not Resolved]
  - Vomiting [Unknown]
  - Dyspepsia [Unknown]
  - Eating disorder [Unknown]
  - Gait disturbance [Unknown]
  - Abdominal distension [Unknown]
  - Liver disorder [Unknown]
  - Dysgeusia [Unknown]
